FAERS Safety Report 5372246-X (Version None)
Quarter: 2007Q2

REPORT INFORMATION
  Report Type: 
  Country: None (occurrence: None)
  Receive Date: 20070618
  Receipt Date: 20070507
  Transmission Date: 20071010
  Serious: Yes (Other)
  Sender: FDA-Public Use
  Company Number: 07-067

PATIENT
  Age: 70 Year
  Sex: Female
  Weight: 66.6788 kg

DRUGS (9)
  1. ALEVE [Suspect]
     Indication: ARTHRITIS
     Dosage: INTERMITTENT, ORAL
     Route: 048
     Dates: start: 20070401, end: 20070501
  2. ALEVE [Suspect]
     Indication: ARTHRITIS
  3. PLAVIX [Concomitant]
  4. LANOXIN [Concomitant]
  5. FOLIC ACID [Concomitant]
  6. SPIRONOLACTONE [Concomitant]
  7. TORSEMIDE [Concomitant]
  8. COREG [Concomitant]
  9. METHOTREXATE SODIUM [Concomitant]

REACTIONS (2)
  - BLOOD POTASSIUM INCREASED [None]
  - URTICARIA [None]
